FAERS Safety Report 7380736-3 (Version None)
Quarter: 2011Q1

REPORT INFORMATION
  Report Type: 
  Country: None (occurrence: None)
  Receive Date: 20110329
  Receipt Date: 20110318
  Transmission Date: 20110831
  Serious: Yes (Hospitalization)
  Sender: FDA-Public Use
  Company Number: A0753277A

PATIENT
  Age: 49 Year
  Sex: Male
  Weight: 112.7 kg

DRUGS (11)
  1. GLARGINE [Concomitant]
     Dates: start: 20060501, end: 20080611
  2. ASPIRIN [Concomitant]
  3. LUMIGAN [Concomitant]
  4. AVANDIA [Suspect]
     Dosage: 4MG PER DAY
     Route: 048
     Dates: start: 20011113, end: 20080118
  5. GLUCOTROL [Concomitant]
     Dates: start: 20011113, end: 20020201
  6. TRICOR [Concomitant]
  7. PRAVACHOL [Concomitant]
  8. GLIPIZIDE [Concomitant]
  9. ALTACE [Concomitant]
  10. DIOVAN [Concomitant]
  11. ALPHAGAN [Concomitant]

REACTIONS (2)
  - MYOCARDIAL INFARCTION [None]
  - CORONARY ARTERY DISEASE [None]
